FAERS Safety Report 25477763 (Version 3)
Quarter: 2025Q3

REPORT INFORMATION
  Report Type: Spontaneous
  Country: GB (occurrence: GB)
  Receive Date: 20250625
  Receipt Date: 20250708
  Transmission Date: 20251021
  Serious: Yes (Hospitalization, Other)
  Sender: MYLAN
  Company Number: GB-MYLANLABS-2025M1052412

PATIENT
  Sex: Female

DRUGS (1)
  1. CLOZARIL [Suspect]
     Active Substance: CLOZAPINE
     Indication: Schizophrenia
     Dosage: UNK, BID (150MG OM AND 200MG AT NIGHT)
     Dates: start: 20210616, end: 20250611

REACTIONS (3)
  - Subdural haemorrhage [Unknown]
  - Schizophrenia [Unknown]
  - Generalised tonic-clonic seizure [Unknown]
